FAERS Safety Report 12143709 (Version 1)
Quarter: 2016Q1

REPORT INFORMATION
  Report Type: Spontaneous
  Country: US (occurrence: US)
  Receive Date: 20160304
  Receipt Date: 20160304
  Transmission Date: 20160526
  Serious: No
  Sender: FDA-Public Use
  Company Number: US-JNJFOC-20151225968

PATIENT

DRUGS (1)
  1. PEPCID AC [Suspect]
     Active Substance: FAMOTIDINE
     Indication: PRODUCT USED FOR UNKNOWN INDICATION
     Dosage: 20MG IN THE MORNING AND 20MG AT NIGHT
     Route: 048

REACTIONS (4)
  - Dyspnoea [Unknown]
  - Nasal dryness [Unknown]
  - Dizziness [Unknown]
  - Drug intolerance [Unknown]
